FAERS Safety Report 4294547-9 (Version None)
Quarter: 2004Q1

REPORT INFORMATION
  Report Type: 
  Country: None (occurrence: None)
  Receive Date: 20040213
  Receipt Date: 20040112
  Transmission Date: 20041129
  Serious: Yes (Other)
  Sender: FDA-Public Use
  Company Number: PHBS2004ES00799

PATIENT
  Age: 54 Year
  Sex: Female

DRUGS (1)
  1. SALAGEN [Suspect]
     Dosage: 5 MG, UNK
     Route: 048

REACTIONS (3)
  - DIZZINESS [None]
  - HYPERGLYCAEMIA [None]
  - HYPERHIDROSIS [None]
